FAERS Safety Report 11619324 (Version 4)
Quarter: 2015Q4

REPORT INFORMATION
  Report Type: Spontaneous
  Country: US (occurrence: US)
  Receive Date: 20151012
  Receipt Date: 20151015
  Transmission Date: 20160304
  Serious: Yes (Death)
  Sender: FDA-Public Use
  Company Number: US-SA-2015SA021467

PATIENT
  Age: 89 Year
  Sex: Female

DRUGS (5)
  1. VITAMIN B COMPLEX [Concomitant]
     Active Substance: CYANOCOBALAMIN\DEXPANTHENOL\NIACINAMIDE\PYRIDOXINE HYDROCHLORIDE\RIBOFLAVIN 5^-PHOSPHATE SODIUM\THIAMINE HYDROCHLORIDE\VITAMIN B COMPLEX
  2. RENVELA [Suspect]
     Active Substance: SEVELAMER CARBONATE
     Indication: CHRONIC KIDNEY DISEASE
     Dosage: DOSE: 800 MG 3 TABLETS 3 TIMES A DAY WITH MEALS AND ONE TO TWO TABLETS WITH SNACKS
     Route: 048
     Dates: end: 20150307
  3. RENVELA [Suspect]
     Active Substance: SEVELAMER CARBONATE
     Indication: RENAL FAILURE
     Dosage: DOSE: 800 MG 3 TABLETS 3 TIMES A DAY WITH MEALS AND ONE TO TWO TABLETS WITH SNACKS
     Route: 048
     Dates: end: 20150307
  4. VITAMIN D [Concomitant]
     Active Substance: CHOLECALCIFEROL
  5. POTASSIUM [Concomitant]
     Active Substance: POTASSIUM

REACTIONS (4)
  - Hypoacusis [Unknown]
  - Diarrhoea [Unknown]
  - Death [Fatal]
  - Constipation [Unknown]

NARRATIVE: CASE EVENT DATE: 2014
